FAERS Safety Report 14744485 (Version 1)
Quarter: 2018Q2

REPORT INFORMATION
  Report Type: Spontaneous
  Country: US (occurrence: US)
  Receive Date: 20180405
  Receipt Date: 20180405
  Transmission Date: 20180711
  Serious: No
  Sender: FDA-Public Use
  Company Number: None

PATIENT
  Sex: Female
  Weight: 104.33 kg

DRUGS (10)
  1. METHOTREXATE 50 MG/2ML MDV GENERIC [Suspect]
     Active Substance: METHOTREXATE SODIUM
     Indication: BACK PAIN
     Route: 058
     Dates: start: 201609
  2. METHOTREXATE 50 MG/2ML MDV GENERIC [Suspect]
     Active Substance: METHOTREXATE SODIUM
     Indication: RHEUMATOID ARTHRITIS
     Route: 058
     Dates: start: 201609
  3. METHOTREXATE 50 MG/2ML MDV GENERIC [Suspect]
     Active Substance: METHOTREXATE SODIUM
     Indication: FIBROMYALGIA
     Route: 058
     Dates: start: 201609
  4. LYRICA [Suspect]
     Active Substance: PREGABALIN
     Indication: RHEUMATOID ARTHRITIS
     Route: 048
     Dates: start: 201712
  5. LYRICA [Suspect]
     Active Substance: PREGABALIN
     Indication: BACK PAIN
     Route: 048
     Dates: start: 201712
  6. METHOTREXATE 50 MG/2ML MDV GENERIC [Suspect]
     Active Substance: METHOTREXATE SODIUM
     Indication: ANKYLOSING SPONDYLITIS
     Route: 058
     Dates: start: 201609
  7. LYRICA [Suspect]
     Active Substance: PREGABALIN
     Indication: SENILE OSTEOPOROSIS
     Route: 048
     Dates: start: 201712
  8. LYRICA [Suspect]
     Active Substance: PREGABALIN
     Indication: FIBROMYALGIA
     Route: 048
     Dates: start: 201712
  9. LYRICA [Suspect]
     Active Substance: PREGABALIN
     Indication: ANKYLOSING SPONDYLITIS
     Route: 048
     Dates: start: 201712
  10. PREDNISONE. [Concomitant]
     Active Substance: PREDNISONE

REACTIONS (1)
  - Urinary tract infection [None]
